FAERS Safety Report 6782117-X (Version None)
Quarter: 2010Q2

REPORT INFORMATION
  Report Type: 
  Country: None (occurrence: None)
  Receive Date: 20100618
  Receipt Date: 20100618
  Transmission Date: 20101027
  Serious: Yes (Hospitalization)
  Sender: FDA-Public Use
  Company Number: None

PATIENT
  Sex: Female
  Weight: 80.7 kg

DRUGS (5)
  1. FLUOROURACIL [Suspect]
     Dosage: 5349 MG
     Dates: end: 20100606
  2. BEVACIZUMAB (RHUMAB VEGF) [Suspect]
     Dosage: 426 MG
     Dates: end: 20100603
  3. LEUCOVORIN CALCIUM [Suspect]
     Dosage: 764 MG
     Dates: end: 20100603
  4. ELOXATIN [Suspect]
     Dosage: 162 MG
     Dates: end: 20100603
  5. AUGMENTIN '125' [Concomitant]

REACTIONS (4)
  - ODYNOPHAGIA [None]
  - OROPHARYNGEAL BLISTERING [None]
  - STOMATITIS [None]
  - VAGINAL DISCHARGE [None]
